FAERS Safety Report 5453440-6 (Version None)
Quarter: 2007Q3

REPORT INFORMATION
  Report Type: 
  Country: None (occurrence: None)
  Receive Date: 20070913
  Receipt Date: 20070905
  Transmission Date: 20080115
  Serious: Yes (Other)
  Sender: FDA-Public Use
  Company Number: 2007SP017775

PATIENT
  Age: 70 Year
  Sex: Male
  Weight: 108.0015 kg

DRUGS (3)
  1. INTEGRILIN [Suspect]
     Indication: CATHETERISATION CARDIAC
     Dosage: IV
     Route: 042
  2. BIVALIRUDIN [Suspect]
     Indication: PERCUTANEOUS CORONARY INTERVENTION
     Dosage: 0.75 MG/KG; ONCE; IV;  1.75 MG/KG;QH; ;IV
     Route: 042
  3. HEPARIN [Suspect]
     Indication: CATHETERISATION CARDIAC
     Dosage: IV
     Route: 042

REACTIONS (4)
  - ARTERIAL INJURY [None]
  - CARDIAC PROCEDURE COMPLICATION [None]
  - COAGULATION TIME PROLONGED [None]
  - CONDITION AGGRAVATED [None]
